FAERS Safety Report 4726337-4 (Version None)
Quarter: 2005Q3

REPORT INFORMATION
  Report Type: 
  Country: None (occurrence: None)
  Receive Date: 20050725
  Receipt Date: 20050713
  Transmission Date: 20060218
  Serious: Yes (Other)
  Sender: FDA-Public Use
  Company Number: 2005074755

PATIENT
  Age: 60 Year
  Sex: Female
  Weight: 79.8331 kg

DRUGS (6)
  1. ZOLOFT [Suspect]
     Indication: DEPRESSION
     Dosage: 50 MG (5 MG, 1 IN 1D), ORAL
     Route: 048
     Dates: start: 20050404, end: 20050401
  2. ZIAC [Concomitant]
  3. ZETIA [Concomitant]
  4. LEXAPRO [Concomitant]
  5. ALL OTHER THERAPEUTIC PRODUCTS (ALL OTHER THERAPEUTIC PRODUCTS) [Concomitant]
  6. LEVOTHYROXINE SODIUM [Concomitant]

REACTIONS (4)
  - DEPRESSED LEVEL OF CONSCIOUSNESS [None]
  - HYSTERECTOMY [None]
  - INSOMNIA [None]
  - NAUSEA [None]
